FAERS Safety Report 15363071 (Version 6)
Quarter: 2019Q4

REPORT INFORMATION
  Report Type: Report from Study
  Country: US (occurrence: US)
  Receive Date: 20180907
  Receipt Date: 20191123
  Transmission Date: 20200122
  Serious: Yes (Hospitalization, Other)
  Sender: FDA-Public Use
  Company Number: US-TAKEDA-2018TUS026679

PATIENT
  Sex: Female
  Weight: 60.77 kg

DRUGS (1)
  1. VEDOLIZUMAB [Suspect]
     Active Substance: VEDOLIZUMAB
     Indication: CROHN^S DISEASE
     Dosage: 300 MILLIGRAM
     Route: 042

REACTIONS (11)
  - Animal scratch [Unknown]
  - Rectal haemorrhage [Unknown]
  - Nausea [Unknown]
  - Surgery [Unknown]
  - Infection [Unknown]
  - Dizziness [Unknown]
  - Diarrhoea [Recovered/Resolved]
  - Cardiac failure congestive [Unknown]
  - Atypical pneumonia [Recovering/Resolving]
  - Urinary tract infection [Not Recovered/Not Resolved]
  - Vessel puncture site bruise [Unknown]
